FAERS Safety Report 13263794 (Version 5)
Quarter: 2017Q2

REPORT INFORMATION
  Report Type: Spontaneous
  Country: US (occurrence: US)
  Receive Date: 20170223
  Receipt Date: 20170421
  Transmission Date: 20170830
  Serious: No
  Sender: FDA-Public Use
  Company Number: US-PFIZER INC-2017073423

PATIENT
  Age: 55 Year
  Sex: Female

DRUGS (2)
  1. XALKORI [Suspect]
     Active Substance: CRIZOTINIB
     Dosage: 750 MG, DAILY
     Route: 048
     Dates: start: 201602, end: 201604
  2. XALKORI [Suspect]
     Active Substance: CRIZOTINIB
     Indication: NON-SMALL CELL LUNG CANCER
     Dosage: 250 MG, 2X/DAY (BID)
     Route: 048
     Dates: start: 20160201, end: 201603

REACTIONS (1)
  - Neoplasm progression [Not Recovered/Not Resolved]
